FAERS Safety Report 6114188-8 (Version None)
Quarter: 2009Q1

REPORT INFORMATION
  Report Type: 
  Country: None (occurrence: None)
  Receive Date: 20090312
  Receipt Date: 20080604
  Transmission Date: 20090719
  Serious: No
  Sender: FDA-Public Use
  Company Number: US-ABBOTT-08P-163-0455240-00

PATIENT
  Sex: Female

DRUGS (1)
  1. DEPAKOTE [Suspect]
     Indication: BIPOLAR DISORDER
     Dates: end: 20070101

REACTIONS (4)
  - FEELING ABNORMAL [None]
  - HYPERAMMONAEMIA [None]
  - PANCREATIC DISORDER [None]
  - WEIGHT DECREASED [None]
